FAERS Safety Report 21572929 (Version 1)
Quarter: 2022Q4

REPORT INFORMATION
  Report Type: Spontaneous
  Country: DE (occurrence: DE)
  Receive Date: 20221109
  Receipt Date: 20221109
  Transmission Date: 20230113
  Serious: Yes (Hospitalization)
  Sender: FDA-Public Use
  Company Number: DE-ADRED-07537-06

PATIENT
  Age: 67 Year
  Sex: Male

DRUGS (13)
  1. BISOPROLOL [Suspect]
     Active Substance: BISOPROLOL
     Indication: Product used for unknown indication
     Dosage: 2.5 MILLIGRAM, BID (2.5 MG, 1-0-1-0)
     Route: 065
  2. TORSEMIDE [Suspect]
     Active Substance: TORSEMIDE
     Indication: Product used for unknown indication
     Dosage: 50 MILLIGRAM, QD (50 MG, 1-0-0-0)
     Route: 065
  3. SPIRONOLACTONE [Suspect]
     Active Substance: SPIRONOLACTONE
     Indication: Product used for unknown indication
     Dosage: 25 MILLIGRAM, QD (25 MG, 1-0-0-0)
     Route: 065
  4. ARIPIPRAZOLE [Concomitant]
     Active Substance: ARIPIPRAZOLE
     Dosage: 30 MILLIGRAM, QD (30 MG, 1-0-0-0)
     Route: 065
  5. MELPERONE [Concomitant]
     Active Substance: MELPERONE
     Dosage: 25 MILLIGRAM, QD (25 MG, 0-0-2-0)
     Route: 065
  6. RAMIPRIL [Concomitant]
     Active Substance: RAMIPRIL
     Dosage: 5 MILLIGRAM, BID (5 MG, 1-0-1-0)
     Route: 065
  7. LERCANIDIPINE [Concomitant]
     Active Substance: LERCANIDIPINE
     Dosage: 10 MILLIGRAM, BID (10 MG, 1-0-1-0)
     Route: 065
  8. TOUJEO [Concomitant]
     Active Substance: INSULIN GLARGINE
     Dosage: 22 INTERNATIONAL UNIT, QD (22 IU, 0-0-0-1)
     Route: 065
  9. ACTRAPID [Concomitant]
     Active Substance: INSULIN HUMAN
     Dosage: ACCORDING TO SCHEME
     Route: 065
  10. CETIRIZINE [Concomitant]
     Active Substance: CETIRIZINE HYDROCHLORIDE
     Dosage: 10 MILLIGRAM, QD (10 MG, 0-0-1-0)
     Route: 065
  11. AKINETON [Concomitant]
     Active Substance: BIPERIDEN HYDROCHLORIDE
     Dosage: 4 MILLIGRAM, QD (4 MG, 1-0-0-0)
     Route: 065
  12. MOXONIDINE [Concomitant]
     Active Substance: MOXONIDINE
     Dosage: 0.2 MILLIGRAM, BID (0.2 MG, 1-0-1-0)
     Route: 065
  13. ALLOPURINOL [Concomitant]
     Active Substance: ALLOPURINOL
     Dosage: 300 MILLIGRAM, QD (300 MG, 0-0-0.5-0)
     Route: 065

REACTIONS (3)
  - Syncope [Unknown]
  - Peripheral swelling [Unknown]
  - Erythema [Unknown]
